FAERS Safety Report 19690568 (Version 1)
Quarter: 2021Q3

REPORT INFORMATION
  Report Type: Spontaneous
  Country: US (occurrence: US)
  Receive Date: 20210812
  Receipt Date: 20210812
  Transmission Date: 20211014
  Serious: No
  Sender: FDA-Public Use
  Company Number: US-MILLICENT HOLDINGS LTD.-MILL20210715

PATIENT
  Age: 65 Year
  Sex: Female

DRUGS (6)
  1. TRIAMTERENE. [Concomitant]
     Active Substance: TRIAMTERENE
  2. RED YEAST RICE [Concomitant]
     Active Substance: DIETARY SUPPLEMENT
  3. LEVOTHYROXINE. [Concomitant]
     Active Substance: LEVOTHYROXINE
  4. MUSCLE RELAXER [Concomitant]
     Active Substance: UNSPECIFIED INGREDIENT
  5. PLANT STEROLS SUPPLEMENT [Concomitant]
  6. INTRAROSA [Suspect]
     Active Substance: PRASTERONE
     Indication: ATROPHIC VULVOVAGINITIS
     Dosage: UNKNOWN
     Route: 067
     Dates: start: 20210618

REACTIONS (5)
  - Off label use [Not Recovered/Not Resolved]
  - Inappropriate schedule of product administration [Not Recovered/Not Resolved]
  - Vulvovaginal burning sensation [Not Recovered/Not Resolved]
  - Acid base balance abnormal [Not Recovered/Not Resolved]
  - Drug ineffective [Not Recovered/Not Resolved]

NARRATIVE: CASE EVENT DATE: 20210618
